FAERS Safety Report 8489581-9 (Version None)
Quarter: 2012Q3

REPORT INFORMATION
  Report Type: 
  Country: None (occurrence: None)
  Receive Date: 20120705
  Receipt Date: 20120702
  Transmission Date: 20120928
  Serious: Yes (Hospitalization, Other)
  Sender: FDA-Public Use
  Company Number: US-ROXANE LABORATORIES, INC.-2012-RO-01512RO

PATIENT
  Sex: Female

DRUGS (4)
  1. SOLIRIS [Suspect]
     Indication: HAEMOLYTIC URAEMIC SYNDROME
     Route: 042
     Dates: start: 20120425, end: 20120501
  2. PREDNISONE [Suspect]
     Route: 048
     Dates: start: 20120101, end: 20120101
  3. PROGESTERONE [Concomitant]
     Indication: PREGNANCY
  4. SOLIRIS [Suspect]
     Route: 042
     Dates: start: 20120524

REACTIONS (4)
  - ABORTION SPONTANEOUS [None]
  - CERVICAL INCOMPETENCE [None]
  - RETAINED PLACENTA OR MEMBRANES [None]
  - SINUSITIS [None]
